FAERS Safety Report 14956999 (Version 1)
Quarter: 2018Q2

REPORT INFORMATION
  Report Type: Report from Study
  Country: CO (occurrence: CO)
  Receive Date: 20180531
  Receipt Date: 20180531
  Transmission Date: 20180711
  Serious: Yes (Death)
  Sender: FDA-Public Use
  Company Number: PHHY2018CO012019

PATIENT
  Sex: Male

DRUGS (1)
  1. ENTRESTO [Suspect]
     Active Substance: SACUBITRIL\VALSARTAN
     Indication: CARDIAC FAILURE CHRONIC
     Dosage: 50 MG, QD
     Route: 048
     Dates: start: 20180201

REACTIONS (4)
  - Drug prescribing error [Unknown]
  - Death [Fatal]
  - Inappropriate schedule of drug administration [Unknown]
  - Prescribed underdose [Unknown]
